FAERS Safety Report 10173021 (Version 1)
Quarter: 2014Q2

REPORT INFORMATION
  Report Type: Spontaneous
  Country: IT (occurrence: IT)
  Receive Date: 20140515
  Receipt Date: 20140515
  Transmission Date: 20141212
  Serious: No
  Sender: FDA-Public Use
  Company Number: PHHY2014IT058502

PATIENT
  Age: 68 Year
  Sex: Male

DRUGS (2)
  1. ZOMETA [Suspect]
     Indication: RENAL CANCER
     Dosage: 4 MG, CYCLIC
     Route: 042
  2. EVEROLIMUS [Concomitant]
     Dosage: UNK UKN, UNK

REACTIONS (1)
  - Osteonecrosis of jaw [Not Recovered/Not Resolved]
